FAERS Safety Report 25299529 (Version 2)
Quarter: 2025Q3

REPORT INFORMATION
  Report Type: Report from Study
  Country: US (occurrence: US)
  Receive Date: 20250512
  Receipt Date: 20250929
  Transmission Date: 20251020
  Serious: Yes (Other)
  Sender: UCB
  Company Number: US-UCBSA-2025026452

PATIENT
  Age: 32 Year
  Sex: Female
  Weight: 131 kg

DRUGS (6)
  1. BRIVARACETAM [Interacting]
     Active Substance: BRIVARACETAM
     Indication: Epilepsy
     Dates: start: 202312
  2. BRIVARACETAM [Interacting]
     Active Substance: BRIVARACETAM
     Indication: Seizure
     Dosage: 100 MILLIGRAM, 2X/DAY (BID)
  3. BRIVARACETAM [Interacting]
     Active Substance: BRIVARACETAM
  4. ACETAZOLAMIDE [Interacting]
     Active Substance: ACETAZOLAMIDE
     Indication: Catamenial epilepsy
     Dosage: 125 MILLIGRAM, 2X/DAY (BID)
     Route: 048
     Dates: start: 202504, end: 202504
  5. LAMOTRIGINE ER [Interacting]
     Active Substance: LAMOTRIGINE
     Indication: Epilepsy
     Dosage: 150 MILLIGRAM, ONCE DAILY (QD)
     Route: 048
     Dates: start: 202312
  6. DIAMOX SEQUELS [Suspect]
     Active Substance: ACETAZOLAMIDE
     Indication: Seizure
     Dosage: 10 MILLIGRAM, WEEKLY (QW)

REACTIONS (11)
  - Focal dyscognitive seizures [Recovered/Resolved]
  - Drug withdrawal convulsions [Recovered/Resolved]
  - Seizure [Unknown]
  - Dysphemia [Not Recovered/Not Resolved]
  - Drug interaction [Unknown]
  - Fatigue [Unknown]
  - Confusional state [Unknown]
  - Stress [Unknown]
  - Anxiety [Unknown]
  - Sleep deficit [Unknown]
  - Product use issue [Unknown]

NARRATIVE: CASE EVENT DATE: 20250401
